FAERS Safety Report 8221130-2 (Version None)
Quarter: 2012Q1

REPORT INFORMATION
  Report Type: 
  Country: None (occurrence: None)
  Receive Date: 20120320
  Receipt Date: 20120314
  Transmission Date: 20120608
  Serious: Yes (Death, Other)
  Sender: FDA-Public Use
  Company Number: US-BAYER-2011-123875

PATIENT
  Age: 67 Year
  Sex: Male

DRUGS (10)
  1. NEXAVAR [Suspect]
     Indication: HEPATIC NEOPLASM MALIGNANT
     Dosage: 200 MG, BID
     Route: 048
     Dates: start: 20111029, end: 20111221
  2. VOLTAREN [Concomitant]
     Dosage: 1%GEL 3X100GM, UNK
     Dates: start: 20111220
  3. ACYCLOVIR [Concomitant]
     Dosage: UNK
     Dates: start: 20111207
  4. CEFDINIR [Concomitant]
     Dosage: UNK
     Dates: start: 20111227
  5. WARFARIN SODIUM [Concomitant]
     Dosage: UNK
     Dates: start: 20111219
  6. FUROSEMIDE [Concomitant]
     Dosage: UNK
     Dates: start: 20111114
  7. DEXAMETHASONE [Concomitant]
     Dosage: UNK
     Dates: start: 20111019
  8. VELCADE [Concomitant]
     Dosage: UNK, FREQUENCY: WEEKLY
  9. KLOR-CON [Concomitant]
     Dosage: UNK
     Dates: start: 20111214
  10. OTHER IMMUNOSUPPRESSIVE AGENTS [Concomitant]
     Dosage: UNK, FREQUENCY: DAILY

REACTIONS (3)
  - GAMMA-GLUTAMYLTRANSFERASE INCREASED [None]
  - ALANINE AMINOTRANSFERASE INCREASED [None]
  - HEPATIC NEOPLASM MALIGNANT [None]
